FAERS Safety Report 4742847-8 (Version None)
Quarter: 2005Q3

REPORT INFORMATION
  Report Type: 
  Country: None (occurrence: None)
  Receive Date: 20050811
  Receipt Date: 20050803
  Transmission Date: 20060218
  Serious: Yes (Other)
  Sender: FDA-Public Use
  Company Number: PHBS2005CA11371

PATIENT
  Sex: Female
  Weight: 86 kg

DRUGS (2)
  1. COMBIPATCH [Suspect]
     Indication: HORMONE REPLACEMENT THERAPY
     Dosage: 50 ESTR - 140 NORE UG/DAY
     Route: 062
  2. COMBIPATCH [Suspect]
     Dosage: 50 NORE - 250 ESTR UG/DAY
     Route: 062

REACTIONS (2)
  - VAGINAL HAEMORRHAGE [None]
  - WEIGHT INCREASED [None]
